FAERS Safety Report 7689934-2 (Version None)
Quarter: 2011Q3

REPORT INFORMATION
  Report Type: 
  Country: None (occurrence: None)
  Receive Date: 20110818
  Receipt Date: 20110809
  Transmission Date: 20111222
  Serious: No
  Sender: FDA-Public Use
  Company Number: US-BIOGENIDEC-2011BI030115

PATIENT
  Sex: Female

DRUGS (1)
  1. TYSABRI [Suspect]
     Indication: MULTIPLE SCLEROSIS
     Route: 042
     Dates: start: 20100405

REACTIONS (8)
  - RESTLESS LEGS SYNDROME [None]
  - VULVOVAGINAL PAIN [None]
  - VAGINAL HAEMORRHAGE [None]
  - MIGRAINE [None]
  - HYPOAESTHESIA [None]
  - PAIN IN EXTREMITY [None]
  - MUSCLE SPASMS [None]
  - BACK PAIN [None]
